FAERS Safety Report 7020482-9 (Version None)
Quarter: 2010Q3

REPORT INFORMATION
  Report Type: 
  Country: None (occurrence: None)
  Receive Date: 20100929
  Receipt Date: 20100921
  Transmission Date: 20110219
  Serious: Yes (Hospitalization)
  Sender: FDA-Public Use
  Company Number: US-SANOFI-AVENTIS-2010SA050202

PATIENT
  Age: 89 Year
  Sex: Female
  Weight: 56.25 kg

DRUGS (4)
  1. MULTAQ [Suspect]
     Indication: ATRIAL FIBRILLATION
     Route: 048
     Dates: start: 20100709, end: 20100804
  2. PLAVIX [Concomitant]
     Dosage: TWO TIMES PER WEEK
     Route: 048
     Dates: start: 20000101
  3. LANOXIN [Concomitant]
     Route: 048
     Dates: start: 20000101
  4. WARFARIN [Concomitant]
     Dosage: ADJUSTED AS NEEDED
     Dates: start: 20100401

REACTIONS (1)
  - PANCREATITIS [None]
